FAERS Safety Report 18283068 (Version 1)
Quarter: 2020Q3

REPORT INFORMATION
  Report Type: Spontaneous
  Country: JP (occurrence: JP)
  Receive Date: 20200918
  Receipt Date: 20200918
  Transmission Date: 20201103
  Serious: Yes (Death, Other)
  Sender: FDA-Public Use
  Company Number: JP-PFIZER INC-2020359988

PATIENT
  Age: 26 Year
  Sex: Female

DRUGS (5)
  1. BLINCYTO [Suspect]
     Active Substance: BLINATUMOMAB
     Indication: ACUTE LYMPHOCYTIC LEUKAEMIA RECURRENT
     Dosage: 9 UG, CYCLIC (CYCLE 9 MICROGRAM, QD, IV DRIP)
     Route: 041
     Dates: start: 20200325
  2. PROGRAF [Suspect]
     Active Substance: TACROLIMUS
     Dosage: UNK
  3. CELLCEPT [Suspect]
     Active Substance: MYCOPHENOLATE MOFETIL\MYCOPHENOLATE MOFETIL HYDROCHLORIDE
     Dosage: UNK
  4. BESPONSA [Suspect]
     Active Substance: INOTUZUMAB OZOGAMICIN
     Dosage: UNK UNK, CYCLIC
  5. BLINCYTO [Suspect]
     Active Substance: BLINATUMOMAB
     Dosage: 28 UG, CYCLIC (CYCLE 28 MICROGRAM, QD, IV DRIP)
     Route: 041
     Dates: end: 20200509

REACTIONS (4)
  - Cytokine release syndrome [Recovered/Resolved]
  - Sepsis [Fatal]
  - Oral disorder [Unknown]
  - Venoocclusive liver disease [Unknown]

NARRATIVE: CASE EVENT DATE: 2020
